FAERS Safety Report 21998862 (Version 3)
Quarter: 2023Q1

REPORT INFORMATION
  Report Type: Spontaneous
  Country: US (occurrence: US)
  Receive Date: 20230216
  Receipt Date: 20230303
  Transmission Date: 20230418
  Serious: No
  Sender: FDA-Public Use
  Company Number: US-BRISTOL-MYERS SQUIBB COMPANY-2023-022990

PATIENT
  Age: 59 Year
  Sex: Male

DRUGS (2)
  1. REVLIMID [Suspect]
     Active Substance: LENALIDOMIDE
     Indication: Plasma cell myeloma
     Dosage: FREQUENCY: DAILY 14 DAYS ON AND 7 DAYS OFF
     Route: 048
     Dates: start: 20230131
  2. REVLIMID [Suspect]
     Active Substance: LENALIDOMIDE
     Dosage: FREQUENCY: DAILY 14 DAYS ON AND 7 DAYS OFF
     Route: 048
     Dates: start: 202212

REACTIONS (8)
  - Rash [Unknown]
  - Joint swelling [Unknown]
  - Off label use [Unknown]
  - Swelling face [Unknown]
  - Skin exfoliation [Unknown]
  - Blood glucose increased [Unknown]
  - Confusional state [Unknown]
  - Fatigue [Unknown]

NARRATIVE: CASE EVENT DATE: 20230201
